FAERS Safety Report 11539222 (Version 3)
Quarter: 2015Q4

REPORT INFORMATION
  Report Type: Other
  Country: GB (occurrence: GB)
  Receive Date: 20150923
  Receipt Date: 20151029
  Transmission Date: 20160304
  Serious: Yes (Other)
  Sender: FDA-Public Use
  Company Number: GB-SUN PHARMACEUTICAL INDUSTRIES LTD-2015SUN01974

PATIENT

DRUGS (3)
  1. LETROZOLE. [Suspect]
     Active Substance: LETROZOLE
     Indication: PRODUCT USED FOR UNKNOWN INDICATION
  2. LETROZOLE. [Suspect]
     Active Substance: LETROZOLE
     Indication: PRODUCT USED FOR UNKNOWN INDICATION
     Dosage: UNK
     Route: 065
  3. HERCEPTIN [Suspect]
     Active Substance: TRASTUZUMAB
     Indication: PRODUCT USED FOR UNKNOWN INDICATION
     Dosage: 600 MG, 1 DOSE/3 WEEKS; RECEIVED 8 CYCLES
     Route: 058

REACTIONS (17)
  - Stress urinary incontinence [Unknown]
  - Muscle spasms [Unknown]
  - Dyspnoea exertional [Unknown]
  - Dyspnoea [Unknown]
  - Mouth ulceration [Unknown]
  - Chest discomfort [Unknown]
  - Feeling abnormal [Unknown]
  - Pulmonary embolism [Unknown]
  - Arthralgia [Unknown]
  - Paraesthesia [Unknown]
  - Insomnia [Unknown]
  - Diarrhoea [Unknown]
  - Lethargy [Not Recovered/Not Resolved]
  - Lower respiratory tract infection [Unknown]
  - Onychoclasis [Unknown]
  - Neuropathy peripheral [Unknown]
  - Fatigue [Not Recovered/Not Resolved]
